FAERS Safety Report 14740798 (Version 5)
Quarter: 2018Q2

REPORT INFORMATION
  Report Type: Spontaneous
  Country: US (occurrence: US)
  Receive Date: 20180410
  Receipt Date: 20180607
  Transmission Date: 20180711
  Serious: Yes (Other)
  Sender: FDA-Public Use
  Company Number: US-GLAXOSMITHKLINE-US2018057431

PATIENT
  Sex: Female
  Weight: 47 kg

DRUGS (1)
  1. NICODERM CQ [Suspect]
     Active Substance: NICOTINE
     Indication: SMOKING CESSATION THERAPY
     Dosage: 21 MG, UNK
     Dates: start: 20180209, end: 201803

REACTIONS (16)
  - Skin ulcer [Unknown]
  - Skin irritation [Unknown]
  - Thrombosis [Unknown]
  - Pruritus [Unknown]
  - Rash generalised [Unknown]
  - Cardiac disorder [Unknown]
  - Application site pain [Unknown]
  - Chemical burn of skin [Unknown]
  - Lung disorder [Unknown]
  - Application site reaction [Unknown]
  - Chest pain [Unknown]
  - Emergency care [Unknown]
  - Erythema [Unknown]
  - Scab [Unknown]
  - Urticaria [Unknown]
  - Mobility decreased [Unknown]
